FAERS Safety Report 25882027 (Version 1)
Quarter: 2025Q4

REPORT INFORMATION
  Report Type: Spontaneous
  Country: CL (occurrence: CL)
  Receive Date: 20251006
  Receipt Date: 20251006
  Transmission Date: 20260118
  Serious: Yes (Death, Other)
  Sender: ASTELLAS
  Company Number: CL-ASTELLAS-2025-AER-054343

PATIENT
  Age: 81 Year
  Sex: Male

DRUGS (1)
  1. XOSPATA [Suspect]
     Active Substance: GILTERITINIB
     Indication: Acute myeloid leukaemia
     Route: 050

REACTIONS (6)
  - Ileus paralytic [Fatal]
  - Blast cell count increased [Fatal]
  - Neutropenia [Fatal]
  - Sepsis [Fatal]
  - Altered state of consciousness [Fatal]
  - Drug resistance [Fatal]
